FAERS Safety Report 7424042-7 (Version None)
Quarter: 2011Q2

REPORT INFORMATION
  Report Type: 
  Country: None (occurrence: None)
  Receive Date: 20110419
  Receipt Date: 20110304
  Transmission Date: 20111010
  Serious: Yes (Hospitalization, Other)
  Sender: FDA-Public Use
  Company Number: US-BAYER-201010679NA

PATIENT
  Age: 25 Year
  Sex: Female
  Weight: 147.85 kg

DRUGS (15)
  1. FERROUS SULFATE TAB [Concomitant]
  2. VITAMIN B-12 [Concomitant]
     Dosage: UNK UNK, Q3MON
     Route: 030
     Dates: start: 20100628
  3. CELEXA [Concomitant]
     Dosage: 40 MG, QD
     Route: 048
     Dates: start: 20101124
  4. CEPRA [Concomitant]
     Dosage: 500 MG, BID
     Route: 048
     Dates: start: 20090320, end: 20090326
  5. YAZ [Suspect]
     Dosage: UNK
     Dates: start: 20070101, end: 20090901
  6. PAXIL [Concomitant]
  7. CELEXA [Concomitant]
     Indication: ANXIETY
     Dosage: UNK
     Dates: start: 20070601
  8. MOTRIN [Concomitant]
     Dosage: UNK
     Dates: start: 20080201, end: 20100201
  9. YASMIN [Suspect]
     Indication: PRODUCT USED FOR UNKNOWN INDICATION
     Dosage: UNK
     Dates: start: 20020701, end: 20060501
  10. METFORMIN HCL [Concomitant]
     Dosage: UNK
     Route: 048
     Dates: start: 20101124
  11. YASMIN [Suspect]
     Indication: CONTRACEPTION
  12. IBUPROFEN [Concomitant]
     Dosage: UNK
     Dates: start: 20090304, end: 20090611
  13. METFORMIN HCL [Concomitant]
  14. CLONAZEPAM [Concomitant]
  15. PROTONIX [Concomitant]
     Dosage: 40 MG, UNK
     Route: 048
     Dates: start: 20090813, end: 20090815

REACTIONS (3)
  - BILIARY COLIC [None]
  - CHOLECYSTECTOMY [None]
  - CHOLECYSTITIS CHRONIC [None]
